FAERS Safety Report 5147812-7 (Version None)
Quarter: 2006Q4

REPORT INFORMATION
  Report Type: 
  Country: None (occurrence: None)
  Receive Date: 20061110
  Receipt Date: 20061031
  Transmission Date: 20070319
  Serious: Yes (Other)
  Sender: FDA-Public Use
  Company Number: PHBS2006JP16971

PATIENT
  Sex: Male

DRUGS (4)
  1. ZOMETA [Suspect]
     Indication: METASTASES TO BONE
     Dosage: 4 MG, VIA DRIP INFUSION, 2 TIMES PER 3 WEEKS
     Route: 042
     Dates: start: 20060901
  2. TAXOTERE [Concomitant]
  3. LOXONIN [Concomitant]
  4. MORPHINE [Concomitant]

REACTIONS (3)
  - MALAISE [None]
  - OSTEONECROSIS [None]
  - PAIN IN JAW [None]
